FAERS Safety Report 8766498 (Version 1)
Quarter: 2012Q4

REPORT INFORMATION
  Report Type: 
  Country: CA (occurrence: CA)
  Receive Date: 20120904
  Receipt Date: 20120904
  Transmission Date: 20130627
  Serious: Yes (Other)
  Sender: FDA-Public Use
  Company Number: CA-ROCHE-CID000000002136889

PATIENT

DRUGS (2)
  1. AVASTIN [Suspect]
     Indication: RETINAL DISORDER
     Route: 050
  2. RANIBIZUMAB [Suspect]
     Indication: RETINAL DISORDER
     Route: 050

REACTIONS (1)
  - Acute myocardial infarction [Unknown]
